FAERS Safety Report 9048989 (Version 1)
Quarter: 2013Q1

REPORT INFORMATION
  Report Type: Spontaneous
  Country: US (occurrence: US)
  Receive Date: 20130204
  Receipt Date: 20130204
  Transmission Date: 20140127
  Serious: Yes (Hospitalization)
  Sender: FDA-Public Use
  Company Number: US-BAYER-2013-012895

PATIENT
  Age: 23 Year
  Sex: Female
  Weight: 73 kg

DRUGS (2)
  1. YASMIN [Suspect]
     Dosage: UNK
  2. IBUPROFEN [Concomitant]
     Dosage: 600 MG, EVERY 6 HOURS PRN

REACTIONS (2)
  - Deep vein thrombosis [Recovered/Resolved]
  - Thrombophlebitis superficial [Recovered/Resolved]
